FAERS Safety Report 4517777-7 (Version None)
Quarter: 2004Q4

REPORT INFORMATION
  Report Type: 
  Country: None (occurrence: None)
  Receive Date: 20041130
  Receipt Date: 20041117
  Transmission Date: 20050328
  Serious: Yes (Death, Life-Threatening, Hospitalization, Other)
  Sender: FDA-Public Use
  Company Number: 2004066474

PATIENT
  Age: 82 Year
  Sex: Female

DRUGS (13)
  1. ALPRESS (PRAZOSIN) [Suspect]
     Indication: ESSENTIAL HYPERTENSION
     Dosage: 2.5 MG (5 MG 1 IN 1 D) ORAL
     Route: 048
     Dates: start: 20040515, end: 20040517
  2. AMLODIPINE [Suspect]
     Indication: ESSENTIAL HYPERTENSION
     Dosage: 5 MG (5 MG, 1 IN 1 D) ORAL
     Route: 048
  3. FUROSEMIDE [Suspect]
     Indication: RENAL FAILURE CHRONIC
     Dosage: 500 MG (1 IN 1 D) INTRAVENOUS
     Route: 042
     Dates: start: 20040511, end: 20040526
  4. NICORANDIL (NICORANDIL) [Suspect]
     Indication: ILL-DEFINED DISORDER
     Dosage: 40 MG (20 MG, 1 IN 1 D) ORAL
     Route: 048
     Dates: start: 20040511, end: 20040527
  5. NITROGLYCERIN [Suspect]
     Indication: ILL-DEFINED DISORDER
     Dosage: 15 MG TOPICAL
     Route: 061
     Dates: end: 20040519
  6. TERBUTALINE SULFATE [Concomitant]
  7. IPATROPIUM BROMIDE [Concomitant]
  8. LORATADINE [Concomitant]
  9. ESOMEPRAZOLE MAGNESIUM [Concomitant]
  10. ACETYLSALICYLATE  LYSINE [Concomitant]
  11. INSULIN ISOPHANE, HUMAN BIOSYNTHETIC) [Concomitant]
  12. EPOETIN BETA [Concomitant]
  13. POTASSIUM CHLORIDE [Concomitant]

REACTIONS (5)
  - CARDIAC FAILURE [None]
  - DEPRESSED LEVEL OF CONSCIOUSNESS [None]
  - FALL [None]
  - MULTI-ORGAN FAILURE [None]
  - SUBDURAL HAEMATOMA [None]
